FAERS Safety Report 26143227 (Version 1)
Quarter: 2025Q4

REPORT INFORMATION
  Report Type: Spontaneous
  Country: US (occurrence: US)
  Receive Date: 20251211
  Receipt Date: 20251211
  Transmission Date: 20260118
  Serious: No
  Sender: JOHNSON AND JOHNSON
  Company Number: US-JNJFOC-20251212802

PATIENT

DRUGS (2)
  1. SPRAVATO [Suspect]
     Active Substance: ESKETAMINE
     Indication: Product used for unknown indication
     Dosage: FOUR WEEKS
     Route: 045
  2. BUPROPION\DEXTROMETHORPHAN [Concomitant]
     Active Substance: BUPROPION\DEXTROMETHORPHAN
     Indication: Major depression
     Dosage: 45 MG/105 MG
     Route: 045

REACTIONS (1)
  - Drug ineffective [Unknown]
